FAERS Safety Report 6506314-3 (Version None)
Quarter: 2009Q4

REPORT INFORMATION
  Report Type: 
  Country: None (occurrence: None)
  Receive Date: 20091218
  Receipt Date: 20091209
  Transmission Date: 20100525
  Serious: Yes (Other)
  Sender: FDA-Public Use
  Company Number: US-AMGEN-QUU374090

PATIENT
  Sex: Female
  Weight: 55.8 kg

DRUGS (18)
  1. ARANESP [Suspect]
     Indication: MYELODYSPLASTIC SYNDROME
     Route: 065
     Dates: start: 20080325, end: 20080512
  2. LENALIDOMIDE [Concomitant]
     Indication: DRUG USE FOR UNKNOWN INDICATION
     Route: 048
     Dates: start: 20080512, end: 20090505
  3. ASPIRIN [Concomitant]
  4. ZOCOR [Concomitant]
  5. TOPROL-XL [Concomitant]
  6. COZAAR [Concomitant]
  7. LOVAZA [Concomitant]
  8. MAGNESIUM OXIDE [Concomitant]
  9. GARLIC [Concomitant]
  10. GLUCOSAMINE [Concomitant]
  11. LECITHIN [Concomitant]
  12. FLAX SEED OIL [Concomitant]
  13. OMEPRAZOLE [Concomitant]
  14. MULTI-VITAMINS [Concomitant]
  15. GABAPENTIN [Concomitant]
  16. AMITRIPTYLINE [Concomitant]
  17. XANAX [Concomitant]
  18. ALBUTEROL [Concomitant]

REACTIONS (12)
  - ANGINA UNSTABLE [None]
  - AORTIC OCCLUSION [None]
  - CAROTID ARTERY STENOSIS [None]
  - CORONARY ARTERY DISEASE [None]
  - COUGH [None]
  - DRUG INEFFECTIVE [None]
  - DYSPNOEA [None]
  - METABOLIC SYNDROME [None]
  - RASH [None]
  - RENAL FAILURE [None]
  - SUBCLAVIAN ARTERY STENOSIS [None]
  - VERTEBRAL ARTERY OCCLUSION [None]
